FAERS Safety Report 5412962-4 (Version None)
Quarter: 2007Q3

REPORT INFORMATION
  Report Type: 
  Country: None (occurrence: None)
  Receive Date: 20070809
  Receipt Date: 20070726
  Transmission Date: 20080115
  Serious: Yes (Death)
  Sender: FDA-Public Use
  Company Number: CHNY2007GB02646

PATIENT
  Age: 54 Year
  Sex: Female

DRUGS (3)
  1. IBUPROFEN [Suspect]
  2. THEOPHYLLINE [Suspect]
  3. FORMED BEZOAR [Suspect]

REACTIONS (5)
  - BEZOAR [None]
  - CARDIAC ARREST [None]
  - LETHARGY [None]
  - OVERDOSE [None]
  - TACHYCARDIA [None]
